FAERS Safety Report 12640972 (Version 2)
Quarter: 2017Q1

REPORT INFORMATION
  Report Type: Spontaneous
  Country: GB (occurrence: GB)
  Receive Date: 20160810
  Receipt Date: 20170223
  Transmission Date: 20170428
  Serious: Yes (Other)
  Sender: FDA-Public Use
  Company Number: GB-SA-2016SA143279

PATIENT
  Age: 69 Year
  Sex: Female
  Weight: 62.2 kg

DRUGS (3)
  1. ENOXAPARIN SODIUM. [Suspect]
     Active Substance: ENOXAPARIN SODIUM
     Indication: THROMBOSIS PROPHYLAXIS
     Route: 051
     Dates: start: 20160526
  2. RITUXIMAB [Suspect]
     Active Substance: RITUXIMAB
     Indication: DIFFUSE LARGE B-CELL LYMPHOMA
     Dosage: DOSE:375 MILLIGRAM(S)/MILLILITRE
     Route: 065
     Dates: start: 20160526
  3. REVLIMID [Suspect]
     Active Substance: LENALIDOMIDE
     Indication: DIFFUSE LARGE B-CELL LYMPHOMA
     Dosage: 20MG DAILY (ON DAYS 1-21 ON A 28 DAY CYCLE)
     Route: 065
     Dates: start: 20160526

REACTIONS (1)
  - Neutropenia [Recovering/Resolving]

NARRATIVE: CASE EVENT DATE: 20160719
